FAERS Safety Report 24592636 (Version 1)
Quarter: 2024Q4

REPORT INFORMATION
  Report Type: Spontaneous
  Country: NP (occurrence: NP)
  Receive Date: 20241108
  Receipt Date: 20241108
  Transmission Date: 20250114
  Serious: Yes (Hospitalization, Other)
  Sender: Steriscience PTE
  Company Number: NP-STERISCIENCE B.V.-2024-ST-001836

PATIENT
  Age: 15 Year
  Sex: Female

DRUGS (5)
  1. ACETYLCYSTEINE [Suspect]
     Active Substance: ACETYLCYSTEINE
     Indication: Chemical poisoning
     Dosage: 70 MILLIGRAM, QH
     Route: 051
  2. MEROPENEM [Suspect]
     Active Substance: MEROPENEM
     Indication: Acute kidney injury
     Dosage: 1 GRAM
     Route: 051
  3. VANCOMYCIN [Suspect]
     Active Substance: VANCOMYCIN
     Indication: Acute kidney injury
     Dosage: 500 MILLIGRAM
     Route: 051
  4. CEFEPIME [Suspect]
     Active Substance: CEFEPIME HYDROCHLORIDE
     Indication: Chemical poisoning
     Dosage: 1 GRAM
     Route: 065
  5. DEXAMETHASONE [Suspect]
     Active Substance: DEXAMETHASONE
     Indication: Chemical poisoning
     Dosage: 4 MILLIGRAM, TABLET
     Route: 065

REACTIONS (2)
  - Condition aggravated [Unknown]
  - Drug ineffective for unapproved indication [Unknown]
